FAERS Safety Report 8088627-X (Version None)
Quarter: 2012Q1

REPORT INFORMATION
  Report Type: 
  Country: None (occurrence: None)
  Receive Date: 20120128
  Receipt Date: 20110501
  Transmission Date: 20120608
  Serious: Yes (Hospitalization)
  Sender: FDA-Public Use
  Company Number: US-ABBOTT-11P-163-0723367-00

PATIENT
  Age: 26 Year
  Sex: Female

DRUGS (2)
  1. HUMIRA [Suspect]
     Indication: CROHN'S DISEASE
     Route: 058
     Dates: start: 20080101, end: 20110401
  2. HUMIRA [Suspect]
     Indication: RHEUMATOID ARTHRITIS

REACTIONS (9)
  - VIITH NERVE PARALYSIS [None]
  - GAIT DISTURBANCE [None]
  - DIARRHOEA [None]
  - VOMITING [None]
  - NERVOUS SYSTEM DISORDER [None]
  - DYSARTHRIA [None]
  - ASTHENIA [None]
  - CROHN'S DISEASE [None]
  - PARAESTHESIA [None]
